FAERS Safety Report 12582253 (Version 1)
Quarter: 2016Q3

REPORT INFORMATION
  Report Type: Spontaneous
  Country: US (occurrence: None)
  Receive Date: 20160721
  Receipt Date: 20160721
  Transmission Date: 20161109
  Serious: Yes (Hospitalization)
  Sender: FDA-Public Use
  Company Number: None

PATIENT
  Sex: Male
  Weight: 92.99 kg

DRUGS (3)
  1. LATUDA [Suspect]
     Active Substance: LURASIDONE HYDROCHLORIDE
     Indication: SCHIZOAFFECTIVE DISORDER BIPOLAR TYPE
     Route: 048
     Dates: start: 20130704, end: 20140704
  2. SEROQUEL [Concomitant]
     Active Substance: QUETIAPINE FUMARATE
  3. RISPERDAL [Concomitant]
     Active Substance: RISPERIDONE

REACTIONS (5)
  - Psychotic disorder [None]
  - Aggression [None]
  - Abnormal behaviour [None]
  - Mania [None]
  - Agitation [None]
